FAERS Safety Report 7422782-7 (Version None)
Quarter: 2011Q2

REPORT INFORMATION
  Report Type: 
  Country: None (occurrence: None)
  Receive Date: 20110419
  Receipt Date: 20110408
  Transmission Date: 20111010
  Serious: Yes (Other)
  Sender: FDA-Public Use
  Company Number: US-US-EMD SERONO, INC.-7052799

PATIENT
  Sex: Male
  Weight: 108 kg

DRUGS (2)
  1. REBIF [Suspect]
     Indication: MULTIPLE SCLEROSIS
     Route: 058
     Dates: start: 20100309
  2. AGENT ORANGE EXPOSURE [Suspect]

REACTIONS (2)
  - TYPE 2 DIABETES MELLITUS [None]
  - RENAL DISORDER [None]
